FAERS Safety Report 10079640 (Version 4)
Quarter: 2014Q4

REPORT INFORMATION
  Report Type: Report from Study
  Country: IT (occurrence: IT)
  Receive Date: 20140415
  Receipt Date: 20141125
  Transmission Date: 20150528
  Serious: Yes (Life-Threatening, Hospitalization)
  Sender: FDA-Public Use
  Company Number: IT-SA-2014SA041463

PATIENT
  Age: 76 Year
  Sex: Female

DRUGS (13)
  1. DOCETAXEL. [Suspect]
     Active Substance: DOCETAXEL
     Indication: HER-2 POSITIVE BREAST CANCER
     Route: 042
     Dates: start: 20131206, end: 20140404
  2. I.V. SOLUTIONS [Concomitant]
     Route: 042
     Dates: end: 20140401
  3. TRASTUZUMAB [Suspect]
     Active Substance: TRASTUZUMAB
     Indication: HER-2 POSITIVE BREAST CANCER
     Dosage: LOADING DOSE: 8 MG/KG, 1 IN 1 TOTAL
     Route: 042
     Dates: start: 20131206
  4. PERTUZUMAB [Suspect]
     Active Substance: PERTUZUMAB
     Indication: HER-2 POSITIVE BREAST CANCER
     Dosage: LOADING DOSE: 840 MG DAY 1 OF CYCLE 1, 1 IN 1 TOTAL
     Route: 042
     Dates: start: 20131206
  5. TRASTUZUMAB [Suspect]
     Active Substance: TRASTUZUMAB
     Indication: HER-2 POSITIVE BREAST CANCER
     Dosage: MAINTAINENCE DOSE: 354 MG, 1 IN 3 WEEK
     Route: 042
     Dates: start: 20140404
  6. CODEINE [Concomitant]
     Active Substance: CODEINE
     Dates: start: 20140104, end: 20140221
  7. PREDNISONE. [Concomitant]
     Active Substance: PREDNISONE
     Dates: start: 20140110
  8. PARACETAMOL [Concomitant]
     Active Substance: ACETAMINOPHEN
     Dates: start: 20140104, end: 20140221
  9. OXYCODONE [Concomitant]
     Active Substance: OXYCODONE
     Dates: start: 20140110
  10. ELECTROLYTE SOLUTIONS [Concomitant]
     Active Substance: UNSPECIFIED INGREDIENT
  11. PROTON PUMP INHIBITORS [Concomitant]
     Active Substance: UNSPECIFIED INGREDIENT
  12. PERTUZUMAB [Suspect]
     Active Substance: PERTUZUMAB
     Indication: HER-2 POSITIVE BREAST CANCER
     Dosage: MAINTAINENCE DOSE: 420 MG, 1 IN 3 WEEK
     Route: 042
     Dates: start: 20140404
  13. CALCIUM-SANDOZ [Concomitant]
     Active Substance: CALCIUM
     Indication: PROPHYLAXIS
     Dates: start: 20140110

REACTIONS (3)
  - Hypokalaemia [Recovered/Resolved]
  - Diarrhoea [Recovering/Resolving]
  - Dehydration [Recovering/Resolving]

NARRATIVE: CASE EVENT DATE: 20140321
